FAERS Safety Report 10373669 (Version 1)
Quarter: 2014Q1

REPORT INFORMATION
  Report Type: Spontaneous
  Country: US (occurrence: None)
  Receive Date: 20140306
  Receipt Date: 20140306
  Transmission Date: 20141002
  Serious: Yes (Hospitalization)
  Sender: FDA-Public Use
  Company Number: 163-21880-13051723

PATIENT
  Age: 64 Year
  Sex: Female
  Weight: 79.4 kg

DRUGS (14)
  1. REVLIMID (LENALIDOMIDE) (15 MILLIGRAM, CAPSULES) [Suspect]
     Indication: PLASMA CELL MYELOMA
     Route: 048
     Dates: start: 201201
  2. AMBIEN (ZOLPIDEM TARTRATE) (TABLETS) [Concomitant]
  3. AMLODIPINE BESYLATE (AMLODIPINE BESILATE) (TABLETS) [Concomitant]
  4. DEXAMETHASONE (DEXAMETHASONE) (TABLETS) [Concomitant]
  5. LYRICA (PREGABALIN) (CAPSULES) [Concomitant]
  6. ZOMETA (ZOLEDRONIC ACID) (CAPSULES) [Concomitant]
  7. ACYCLOVIR (ACICLOVIR) (TABLETS) [Concomitant]
  8. ASPIRIN (ACETYLSALICYLIC ACID) (TABLETS) [Concomitant]
  9. CALCIUM (CALCIUM) (TABLETS) [Concomitant]
  10. OXYCODONE HCL (OXYCODONE HYDROCHLORIDE) (TABLETS) [Concomitant]
  11. MUCINEX (GUAIFENESIN) (SUSTAINED-RELEASE TABLET) [Concomitant]
  12. VITAMIN D (ERGOCALCIFEROL) [Concomitant]
  13. VITAMIN C (ASCORBIC ACID) (TABLETS) [Concomitant]
  14. VELCADE (BORTEZOMIB) [Concomitant]

REACTIONS (2)
  - Pneumonia [None]
  - Diarrhoea [None]
